FAERS Safety Report 20892539 (Version 2)
Quarter: 2022Q3

REPORT INFORMATION
  Report Type: Other
  Country: US (occurrence: None)
  Receive Date: 20220531
  Receipt Date: 20220906
  Transmission Date: 20221027
  Serious: Yes (Hospitalization)
  Sender: FDA-Public Use
  Company Number: US-ROCHE-3106630

PATIENT
  Sex: Female

DRUGS (4)
  1. OCREVUS [Suspect]
     Active Substance: OCRELIZUMAB
     Indication: Relapsing-remitting multiple sclerosis
     Dosage: LAST INFUSION OF OCRELIZUMAB ON 28/JAN/2021, 28/JUN/2021
     Route: 042
  2. MODAFINIL [Concomitant]
     Active Substance: MODAFINIL
  3. ZOLOFT [Concomitant]
     Active Substance: SERTRALINE HYDROCHLORIDE
  4. SOLU-MEDROL [Concomitant]
     Active Substance: METHYLPREDNISOLONE SODIUM SUCCINATE

REACTIONS (7)
  - Hypoaesthesia [Unknown]
  - Paraesthesia [Unknown]
  - COVID-19 [Unknown]
  - Vision blurred [Unknown]
  - Maternal exposure during pregnancy [Unknown]
  - Gait disturbance [Unknown]
  - Muscle spasms [Unknown]
